FAERS Safety Report 17007295 (Version 1)
Quarter: 2019Q4

REPORT INFORMATION
  Report Type: Report from Study
  Country: None (occurrence: ES)
  Receive Date: 20191108
  Receipt Date: 20191108
  Transmission Date: 20200122
  Serious: Yes (Hospitalization)
  Sender: FDA-Public Use
  Company Number: ES-ABBVIE-19K-144-2978822-00

PATIENT
  Age: 72 Year
  Sex: Male

DRUGS (1)
  1. DUODOPA [Suspect]
     Active Substance: CARBIDOPA\LEVODOPA
     Indication: PARKINSON^S DISEASE
     Route: 050
     Dates: start: 20181120

REACTIONS (8)
  - Device issue [Recovered/Resolved]
  - Secretion discharge [Unknown]
  - Gastrointestinal hypomotility [Unknown]
  - Device dislocation [Recovered/Resolved]
  - On and off phenomenon [Recovered/Resolved]
  - Drug ineffective [Unknown]
  - Constipation [Unknown]
  - Infection [Unknown]

NARRATIVE: CASE EVENT DATE: 201910
